FAERS Safety Report 9273264 (Version 2)
Quarter: 2014Q1

REPORT INFORMATION
  Report Type: Spontaneous
  Country: FR (occurrence: FR)
  Receive Date: 20130506
  Receipt Date: 20140116
  Transmission Date: 20141002
  Serious: Yes (Life-Threatening, Hospitalization, Other)
  Sender: FDA-Public Use
  Company Number: FR-BRISTOL-MYERS SQUIBB COMPANY-18851766

PATIENT
  Age: 60 Year
  Sex: Female
  Weight: 71 kg

DRUGS (7)
  1. NULOJIX [Suspect]
     Indication: RENAL TRANSPLANT
     Dosage: SEP 2012.
     Route: 042
     Dates: start: 201209, end: 20130426
  2. PROTELOS [Suspect]
     Indication: OSTEOPOROSIS
     Dosage: 2 SACHETS.
     Route: 048
     Dates: start: 2005, end: 20130426
  3. NEBIVOLOL [Concomitant]
     Indication: DRUG THERAPY
  4. ZOVIRAX [Concomitant]
     Indication: GENITAL HERPES
  5. UN-ALFA [Concomitant]
     Dosage: 1 DF = 0.5/DAY.
  6. MYFORTIC [Concomitant]
  7. CORTANCYL [Concomitant]
     Indication: RHEUMATOID ARTHRITIS

REACTIONS (4)
  - Pulmonary embolism [Not Recovered/Not Resolved]
  - Phlebitis [Not Recovered/Not Resolved]
  - Pulmonary arterial hypertension [Unknown]
  - Off label use [Unknown]
